FAERS Safety Report 11531717 (Version 3)
Quarter: 2015Q3

REPORT INFORMATION
  Report Type: Spontaneous
  Country: US (occurrence: US)
  Receive Date: 20150921
  Receipt Date: 20150923
  Transmission Date: 20151125
  Serious: Yes (Hospitalization)
  Sender: FDA-Public Use
  Company Number: US-009507513-1509USA006978

PATIENT
  Sex: Female

DRUGS (1)
  1. PROVENTIL [Suspect]
     Active Substance: ALBUTEROL
     Indication: ASTHMA
     Dosage: STRENGTH: 90 MCG/ACT 6.8GM, 2 DF, QID
     Route: 055

REACTIONS (4)
  - Oxygen consumption decreased [Unknown]
  - Feeling abnormal [Unknown]
  - Product quality issue [Unknown]
  - Weight decreased [Unknown]
